FAERS Safety Report 23191116 (Version 2)
Quarter: 2024Q1

REPORT INFORMATION
  Report Type: Spontaneous
  Country: DE (occurrence: DE)
  Receive Date: 20231116
  Receipt Date: 20240326
  Transmission Date: 20240409
  Serious: Yes (Other)
  Sender: FDA-Public Use
  Company Number: DE-UCBSA-2023052502

PATIENT
  Sex: Male

DRUGS (9)
  1. OXCARBAZEPINE [Suspect]
     Active Substance: OXCARBAZEPINE
     Indication: Product used for unknown indication
     Dosage: 1800 MG, QD (UP TO 1800 MG/DAY)
     Route: 065
  2. LEVETIRACETAM [Suspect]
     Active Substance: LEVETIRACETAM
     Indication: Product used for unknown indication
     Dosage: 3000 MG, QD (UP TO 3000 MILLIGRAM/DAY)
     Route: 065
  3. LAMOTRIGINE [Suspect]
     Active Substance: LAMOTRIGINE
     Indication: Product used for unknown indication
     Dosage: 400 MG, QD (UPTO 400 MG/DAY)
     Route: 065
  4. PERAMPANEL [Suspect]
     Active Substance: PERAMPANEL
     Indication: Product used for unknown indication
     Dosage: 8 MG, QD (UP TO 8 MILLIGRAM/DAY)
     Route: 065
     Dates: start: 202001
  5. CENOBAMATE [Suspect]
     Active Substance: CENOBAMATE
     Indication: Product used for unknown indication
     Dosage: 200 MG (UPTO 200 MILLIGRAM)
     Route: 065
     Dates: start: 202103
  6. BRIVARACETAM [Suspect]
     Active Substance: BRIVARACETAM
     Indication: Product used for unknown indication
     Dosage: 400 MG, QD (UP TO 400 MG/DAY)
     Route: 065
     Dates: start: 202001
  7. LACOSAMIDE [Suspect]
     Active Substance: LACOSAMIDE
     Indication: Product used for unknown indication
     Dosage: 400 MG, QD
     Route: 065
     Dates: start: 202001
  8. LACOSAMIDE [Suspect]
     Active Substance: LACOSAMIDE
     Dosage: 500 MG, QD (UPTO 500MG/DAY)
     Route: 065
  9. VALPROATE [Suspect]
     Active Substance: VALPROIC ACID
     Indication: Product used for unknown indication
     Dosage: 2000 MG, QD
     Route: 065
     Dates: start: 202010

REACTIONS (5)
  - Seizure [Unknown]
  - Multiple-drug resistance [Unknown]
  - Disturbance in attention [Unknown]
  - Fatigue [Recovering/Resolving]
  - Prescribed overdose [Unknown]

NARRATIVE: CASE EVENT DATE: 20201001
